APPROVED DRUG PRODUCT: GUAIFENESIN
Active Ingredient: GUAIFENESIN
Strength: 600MG
Dosage Form/Route: TABLET, EXTENDED RELEASE;ORAL
Application: A213420 | Product #001
Applicant: GRANULES INDIA LTD
Approved: May 8, 2020 | RLD: No | RS: No | Type: OTC